FAERS Safety Report 5375759-X (Version None)
Quarter: 2007Q2

REPORT INFORMATION
  Report Type: 
  Country: None (occurrence: None)
  Receive Date: 20070628
  Receipt Date: 20070618
  Transmission Date: 20071010
  Serious: Yes (Other)
  Sender: FDA-Public Use
  Company Number: 234974K07USA

PATIENT
  Age: 63 Year
  Sex: Male

DRUGS (1)
  1. REBIF (INTERRERON BETA) [Suspect]
     Indication: MULTIPLE SCLEROSIS
     Dosage: 44 MCG, 3 IN 1 WEEKS, SUBCUTANEOUS
     Route: 058
     Dates: start: 20061018, end: 20070101

REACTIONS (1)
  - INTERVERTEBRAL DISC INJURY [None]
